FAERS Safety Report 10243209 (Version 1)
Quarter: 2014Q2

REPORT INFORMATION
  Report Type: Spontaneous
  Country: MY (occurrence: MY)
  Receive Date: 20140618
  Receipt Date: 20140618
  Transmission Date: 20141212
  Serious: Yes (Other)
  Sender: FDA-Public Use
  Company Number: MY-JNJFOC-20140607931

PATIENT
  Age: 19 Year
  Sex: Male

DRUGS (2)
  1. INFLIXIMAB, RECOMBINANT [Suspect]
     Indication: ANKYLOSING SPONDYLITIS
     Dosage: HAD RECEIVED TWO DOSES
     Route: 042
  2. ETANERCEPT [Suspect]
     Indication: PRODUCT USED FOR UNKNOWN INDICATION
     Dosage: HAD RECEIVED 11 DOSES.
     Route: 065

REACTIONS (2)
  - Ileal perforation [Unknown]
  - Tuberculosis [Recovering/Resolving]
